FAERS Safety Report 6132674-1 (Version None)
Quarter: 2009Q1

REPORT INFORMATION
  Report Type: 
  Country: None (occurrence: None)
  Receive Date: 20090324
  Receipt Date: 20090316
  Transmission Date: 20090719
  Serious: Yes (Hospitalization)
  Sender: FDA-Public Use
  Company Number: 1-17838800

PATIENT
  Age: 74 Year
  Sex: Male

DRUGS (1)
  1. PREDNISOLONE [Suspect]
     Indication: RHEUMATOID ARTHRITIS
     Dosage: 15 MG DAILY

REACTIONS (11)
  - BLISTER [None]
  - CRYPTOCOCCOSIS [None]
  - CULTURE POSITIVE [None]
  - DYSPNOEA [None]
  - ERYTHEMA [None]
  - HAEMORRHAGE [None]
  - HYPERTENSION [None]
  - IDIOSYNCRATIC DRUG REACTION [None]
  - NECROSIS [None]
  - SKIN ULCER [None]
  - TACHYCARDIA [None]
